FAERS Safety Report 18004706 (Version 2)
Quarter: 2020Q3

REPORT INFORMATION
  Report Type: Spontaneous
  Country: US (occurrence: US)
  Receive Date: 20200709
  Receipt Date: 20200805
  Transmission Date: 20201103
  Serious: Yes (Hospitalization, Other)
  Sender: FDA-Public Use
  Company Number: US-SUNOVION-2020SUN001998

PATIENT
  Sex: Female

DRUGS (1)
  1. XOPENEX [Suspect]
     Active Substance: LEVALBUTEROL HYDROCHLORIDE
     Dosage: UNK
     Route: 055

REACTIONS (7)
  - Malaise [Unknown]
  - Wheezing [Unknown]
  - Asthma [Unknown]
  - Cardiomyopathy [Unknown]
  - Angina pectoris [Unknown]
  - Feeling of despair [Unknown]
  - Expired product administered [Unknown]

NARRATIVE: CASE EVENT DATE: 20200724
